FAERS Safety Report 19652025 (Version 5)
Quarter: 2025Q1

REPORT INFORMATION
  Report Type: Report from Study
  Country: US (occurrence: US)
  Receive Date: 20210803
  Receipt Date: 20250212
  Transmission Date: 20250409
  Serious: No
  Sender: TAKEDA
  Company Number: US-TAKEDA-2021TUS034182

PATIENT
  Sex: Female
  Weight: 70 kg

DRUGS (23)
  1. TEDUGLUTIDE [Suspect]
     Active Substance: TEDUGLUTIDE
     Indication: Short-bowel syndrome
     Dosage: UNK UNK, QD
     Dates: start: 20181008
  2. TEDUGLUTIDE [Suspect]
     Active Substance: TEDUGLUTIDE
     Dosage: UNK UNK, QD
     Dates: start: 201810
  3. TEDUGLUTIDE [Suspect]
     Active Substance: TEDUGLUTIDE
     Dosage: UNK UNK, QD
     Dates: start: 20210706
  4. TEDUGLUTIDE [Suspect]
     Active Substance: TEDUGLUTIDE
     Dosage: 0.347 MILLILITER, DAILY
  5. TEDUGLUTIDE [Suspect]
     Active Substance: TEDUGLUTIDE
     Dosage: UNK UNK, QD
  6. ACARBOSE [Concomitant]
     Active Substance: ACARBOSE
  7. ASPIRIN [Concomitant]
     Active Substance: ASPIRIN
  8. BUPROPION [Concomitant]
     Active Substance: BUPROPION
  9. BUSPIRONE HCL [Concomitant]
     Active Substance: BUSPIRONE HYDROCHLORIDE
  10. CLONAZEPAM [Concomitant]
     Active Substance: CLONAZEPAM
  11. DOXEPIN [Concomitant]
     Active Substance: DOXEPIN
  12. FLECAINIDE [Concomitant]
     Active Substance: FLECAINIDE
  13. GABAPENTIN [Concomitant]
     Active Substance: GABAPENTIN
  14. GLUCAGON [Concomitant]
     Active Substance: GLUCAGON
  15. HYDROXYZINE [Concomitant]
     Active Substance: HYDROXYZINE HYDROCHLORIDE
  16. IBUPROFEN [Concomitant]
     Active Substance: IBUPROFEN
  17. LEVOTHYROXINE [Concomitant]
     Active Substance: LEVOTHYROXINE
  18. RELAFEN [Concomitant]
     Active Substance: NABUMETONE
  19. ONDANSETRON [Concomitant]
     Active Substance: ONDANSETRON
  20. OXYCODONE [Concomitant]
     Active Substance: OXYCODONE
  21. TRIAMCINOLONE [Concomitant]
     Active Substance: TRIAMCINOLONE
  22. VENLAFAXINE [Concomitant]
     Active Substance: VENLAFAXINE HYDROCHLORIDE
  23. ZONEGRAN [Concomitant]
     Active Substance: ZONISAMIDE

REACTIONS (3)
  - Weight decreased [Unknown]
  - Insurance issue [Unknown]
  - Product use issue [Unknown]
